FAERS Safety Report 19718907 (Version 2)
Quarter: 2022Q1

REPORT INFORMATION
  Report Type: Spontaneous
  Country: US (occurrence: US)
  Receive Date: 20210818
  Receipt Date: 20220107
  Transmission Date: 20220423
  Serious: Yes (Other)
  Sender: FDA-Public Use
  Company Number: US-GLAXOSMITHKLINE-US2021GSK174141

PATIENT
  Sex: Female

DRUGS (11)
  1. ZANTAC [Suspect]
     Active Substance: RANITIDINE HYDROCHLORIDE
     Indication: Colon cancer
     Dosage: UNK UNK, QD
     Route: 065
     Dates: start: 200909, end: 202003
  2. ZANTAC [Suspect]
     Active Substance: RANITIDINE HYDROCHLORIDE
     Indication: Colon cancer
     Dosage: UNK UNK, QD
     Route: 065
     Dates: start: 200909, end: 202003
  3. ZANTAC [Suspect]
     Active Substance: RANITIDINE HYDROCHLORIDE
     Indication: Colon cancer
     Dosage: UNK UNK, QD
     Route: 065
     Dates: start: 200909, end: 202003
  4. RANITIDINE [Suspect]
     Active Substance: RANITIDINE
     Indication: Colon cancer
     Dosage: UNK UNK, QD
     Route: 065
     Dates: start: 200909, end: 202003
  5. ZANTAC [Suspect]
     Active Substance: RANITIDINE HYDROCHLORIDE
     Indication: Colon cancer
     Dosage: UNK UNK, QD
     Route: 065
     Dates: start: 200909, end: 202003
  6. RANITIDINE [Suspect]
     Active Substance: RANITIDINE
     Indication: Colon cancer
     Dosage: UNK, QD
     Route: 065
     Dates: start: 200909, end: 202003
  7. RANITIDINE HYDROCHLORIDE [Suspect]
     Active Substance: RANITIDINE HYDROCHLORIDE
     Indication: Colon cancer
     Dosage: UNK UNK, QD
     Route: 065
     Dates: start: 200909, end: 202003
  8. ZANTAC [Suspect]
     Active Substance: RANITIDINE HYDROCHLORIDE
     Indication: Product used for unknown indication
     Dosage: UNK
     Route: 065
  9. RANITIDINE HYDROCHLORIDE [Suspect]
     Active Substance: RANITIDINE HYDROCHLORIDE
     Indication: Product used for unknown indication
     Dosage: UNK
     Route: 065
  10. ZANTAC [Suspect]
     Active Substance: RANITIDINE HYDROCHLORIDE
     Indication: Product used for unknown indication
     Dosage: UNK
     Route: 065
  11. RANITIDINE HYDROCHLORIDE [Suspect]
     Active Substance: RANITIDINE HYDROCHLORIDE
     Indication: Product used for unknown indication
     Dosage: UNK
     Route: 065

REACTIONS (1)
  - Colorectal cancer [Unknown]
